FAERS Safety Report 20070561 (Version 1)
Quarter: 2021Q4

REPORT INFORMATION
  Report Type: Spontaneous
  Country: US (occurrence: US)
  Receive Date: 20211115
  Receipt Date: 20211115
  Transmission Date: 20220303
  Serious: No
  Sender: FDA-Public Use
  Company Number: US-JNJFOC-20211127928

PATIENT
  Sex: Female

DRUGS (2)
  1. PONVORY [Suspect]
     Active Substance: PONESIMOD
     Indication: Product used for unknown indication
     Route: 065
     Dates: end: 20211106
  2. PONVORY [Suspect]
     Active Substance: PONESIMOD
     Route: 065
     Dates: start: 20211110

REACTIONS (1)
  - Product dose omission issue [Unknown]
